FAERS Safety Report 8237129-6 (Version None)
Quarter: 2012Q1

REPORT INFORMATION
  Report Type: 
  Country: None (occurrence: None)
  Receive Date: 20120327
  Receipt Date: 20120312
  Transmission Date: 20120608
  Serious: Yes (Hospitalization)
  Sender: FDA-Public Use
  Company Number: US-BAXTER-2012BH006975

PATIENT
  Sex: Male

DRUGS (5)
  1. DIANEAL [Suspect]
     Route: 033
     Dates: end: 20120301
  2. DIANEAL LOW CALCIUM (ULTRABAG) [Suspect]
     Indication: PERITONEAL DIALYSIS
     Route: 033
     Dates: end: 20120301
  3. DIANEAL [Suspect]
     Route: 033
     Dates: end: 20120301
  4. DIANEAL [Suspect]
     Indication: PERITONEAL DIALYSIS
     Route: 033
     Dates: end: 20120301
  5. EXTRANEAL [Suspect]
     Indication: PERITONEAL DIALYSIS
     Route: 033
     Dates: end: 20120301

REACTIONS (3)
  - PAIN [None]
  - MYOCARDIAL INFARCTION [None]
  - MUSCULOSKELETAL STIFFNESS [None]
